FAERS Safety Report 5743354-6 (Version None)
Quarter: 2008Q2

REPORT INFORMATION
  Report Type: 
  Country: None (occurrence: None)
  Receive Date: 20080520
  Receipt Date: 20080508
  Transmission Date: 20081010
  Serious: Yes (Hospitalization, Other)
  Sender: FDA-Public Use
  Company Number: GB-RANBAXY-2007RR-11378

PATIENT

DRUGS (6)
  1. AMIODARONE RPG 200 MG COMPRIME SECABLE [Suspect]
     Dosage: 200 MG, QD
     Route: 065
  2. SIMVASTATIN [Suspect]
     Dosage: 80 MG, QD
     Route: 048
  3. ASPIRIN [Concomitant]
     Dosage: 75 MG, QD
     Route: 065
  4. BENDROFLUMETHIAZIDE [Concomitant]
     Dosage: 2.5 MG, QD
     Route: 065
  5. RAMIPRIL [Concomitant]
     Dosage: 10 MG, QD
     Route: 065
  6. SIMVASTATIN [Concomitant]
     Dosage: 80 MG, QD
     Route: 065

REACTIONS (10)
  - BLOOD CREATINE PHOSPHOKINASE INCREASED [None]
  - BLOOD CREATININE INCREASED [None]
  - BLOOD UREA INCREASED [None]
  - DRUG INTERACTION [None]
  - GAIT DISTURBANCE [None]
  - LIVER FUNCTION TEST ABNORMAL [None]
  - MUSCULAR WEAKNESS [None]
  - MYALGIA [None]
  - RENAL FAILURE ACUTE [None]
  - RHABDOMYOLYSIS [None]
